FAERS Safety Report 4835727-0 (Version None)
Quarter: 2005Q4

REPORT INFORMATION
  Report Type: 
  Country: None (occurrence: None)
  Receive Date: 20051123
  Receipt Date: 20051115
  Transmission Date: 20060501
  Serious: Yes (Hospitalization)
  Sender: FDA-Public Use
  Company Number: US-JNJFOC-20050702622

PATIENT
  Sex: Female
  Weight: 68.95 kg

DRUGS (89)
  1. INFLIXIMAB [Suspect]
     Route: 042
  2. INFLIXIMAB [Suspect]
     Route: 042
  3. INFLIXIMAB [Suspect]
     Route: 042
  4. INFLIXIMAB [Suspect]
     Route: 042
  5. INFLIXIMAB [Suspect]
     Route: 042
  6. INFLIXIMAB [Suspect]
     Route: 042
  7. INFLIXIMAB [Suspect]
     Route: 042
  8. INFLIXIMAB [Suspect]
     Route: 042
  9. INFLIXIMAB [Suspect]
     Route: 042
  10. INFLIXIMAB [Suspect]
     Route: 042
  11. INFLIXIMAB [Suspect]
     Route: 042
  12. INFLIXIMAB [Suspect]
     Route: 042
  13. INFLIXIMAB [Suspect]
     Route: 042
  14. INFLIXIMAB [Suspect]
     Route: 042
  15. INFLIXIMAB [Suspect]
     Route: 042
  16. INFLIXIMAB [Suspect]
     Route: 042
  17. INFLIXIMAB [Suspect]
     Route: 042
  18. INFLIXIMAB [Suspect]
     Route: 042
  19. INFLIXIMAB [Suspect]
     Route: 042
  20. INFLIXIMAB [Suspect]
     Route: 042
  21. INFLIXIMAB [Suspect]
     Route: 042
  22. INFLIXIMAB [Suspect]
     Route: 042
  23. INFLIXIMAB [Suspect]
     Indication: CROHN'S DISEASE
     Route: 042
  24. ACETAMINOPHEN [Concomitant]
  25. ACETAMINOPHEN [Concomitant]
  26. ACETAMINOPHEN [Concomitant]
  27. ACETAMINOPHEN [Concomitant]
  28. ACETAMINOPHEN [Concomitant]
  29. ACETAMINOPHEN [Concomitant]
  30. ACETAMINOPHEN [Concomitant]
  31. ACETAMINOPHEN [Concomitant]
  32. ACETAMINOPHEN [Concomitant]
  33. ACETAMINOPHEN [Concomitant]
  34. ACETAMINOPHEN [Concomitant]
  35. ACETAMINOPHEN [Concomitant]
  36. ACETAMINOPHEN [Concomitant]
  37. ACETAMINOPHEN [Concomitant]
  38. ACETAMINOPHEN [Concomitant]
  39. ACETAMINOPHEN [Concomitant]
  40. ACETAMINOPHEN [Concomitant]
  41. ACETAMINOPHEN [Concomitant]
  42. ACETAMINOPHEN [Concomitant]
  43. ACETAMINOPHEN [Concomitant]
  44. ACETAMINOPHEN [Concomitant]
  45. ACETAMINOPHEN [Concomitant]
  46. ACETAMINOPHEN [Concomitant]
     Indication: PREMEDICATION
  47. ANTI-HISTAMINE TAB [Concomitant]
  48. ANTI-HISTAMINE TAB [Concomitant]
  49. ANTI-HISTAMINE TAB [Concomitant]
  50. ANTI-HISTAMINE TAB [Concomitant]
  51. ANTI-HISTAMINE TAB [Concomitant]
  52. ANTI-HISTAMINE TAB [Concomitant]
  53. ANTI-HISTAMINE TAB [Concomitant]
  54. ANTI-HISTAMINE TAB [Concomitant]
  55. ANTI-HISTAMINE TAB [Concomitant]
  56. ANTI-HISTAMINE TAB [Concomitant]
  57. ANTI-HISTAMINE TAB [Concomitant]
  58. ANTI-HISTAMINE TAB [Concomitant]
  59. ANTI-HISTAMINE TAB [Concomitant]
  60. ANTI-HISTAMINE TAB [Concomitant]
  61. ANTI-HISTAMINE TAB [Concomitant]
  62. ANTI-HISTAMINE TAB [Concomitant]
  63. ANTI-HISTAMINE TAB [Concomitant]
  64. ANTI-HISTAMINE TAB [Concomitant]
  65. ANTI-HISTAMINE TAB [Concomitant]
  66. ANTI-HISTAMINE TAB [Concomitant]
  67. ANTI-HISTAMINE TAB [Concomitant]
  68. ANTI-HISTAMINE TAB [Concomitant]
  69. ANTI-HISTAMINE TAB [Concomitant]
     Indication: PREMEDICATION
  70. STEROIDS [Concomitant]
  71. STEROIDS [Concomitant]
  72. STEROIDS [Concomitant]
  73. STEROIDS [Concomitant]
  74. STEROIDS [Concomitant]
  75. STEROIDS [Concomitant]
  76. STEROIDS [Concomitant]
  77. STEROIDS [Concomitant]
  78. STEROIDS [Concomitant]
  79. STEROIDS [Concomitant]
  80. STEROIDS [Concomitant]
  81. STEROIDS [Concomitant]
  82. STEROIDS [Concomitant]
  83. STEROIDS [Concomitant]
  84. STEROIDS [Concomitant]
  85. STEROIDS [Concomitant]
     Indication: PREMEDICATION
  86. ANTISPASMODICS [Concomitant]
  87. PREDNISONE [Concomitant]
  88. CELLCEPT [Concomitant]
  89. SULFASALAZINE [Concomitant]
     Indication: CROHN'S DISEASE

REACTIONS (2)
  - BLINDNESS TRANSIENT [None]
  - HEADACHE [None]
